FAERS Safety Report 7449480-8 (Version None)
Quarter: 2011Q2

REPORT INFORMATION
  Report Type: 
  Country: None (occurrence: None)
  Receive Date: 20110502
  Receipt Date: 20110418
  Transmission Date: 20111010
  Serious: Yes (Hospitalization)
  Sender: FDA-Public Use
  Company Number: JP-BAYER-2011-021719

PATIENT
  Age: 71 Year
  Sex: Male
  Weight: 59.7 kg

DRUGS (14)
  1. ISOSORBIDE DINITRATE [Concomitant]
  2. ACETYLSALICYLIC ACID SRT [Interacting]
  3. CLOPIDOGREL [Interacting]
     Indication: ACUTE CORONARY SYNDROME
  4. CARVEDILOL [Concomitant]
  5. HEPARIN SODIUM [Concomitant]
  6. INFLUENZA HA VACCINE [Concomitant]
  7. LANSOPRAZOLE [Concomitant]
  8. ROSUVASTATIN CALCIUM [Concomitant]
  9. FERROUS SULFATE TAB [Concomitant]
  10. TELMISARTAN [Concomitant]
  11. CLOPIDOGREL [Interacting]
     Dates: end: 20100812
  12. BENIDIPINE HYDROCHLORIDE [Concomitant]
  13. RIVAROXABAN [Interacting]
     Indication: ACUTE CORONARY SYNDROME
     Dosage: DOSAGE FORM: TABLET, 2.5MG OR 5MG DAILY
     Route: 048
     Dates: start: 20100819
  14. ACETYLSALICYLIC ACID SRT [Suspect]
     Indication: ACUTE CORONARY SYNDROME
     Dates: end: 20100812

REACTIONS (3)
  - ANAL FISTULA [None]
  - INTESTINAL HAEMORRHAGE [None]
  - POST PROCEDURAL HAEMORRHAGE [None]
